FAERS Safety Report 8472527-7 (Version None)
Quarter: 2012Q2

REPORT INFORMATION
  Report Type: 
  Country: None (occurrence: None)
  Receive Date: 20120627
  Receipt Date: 20120622
  Transmission Date: 20120825
  Serious: Yes (Hospitalization)
  Sender: FDA-Public Use
  Company Number: BR-PFIZER INC-2012151826

PATIENT
  Age: 59 Year
  Sex: Male
  Weight: 78 kg

DRUGS (3)
  1. EFFEXOR XR [Suspect]
     Indication: DEPRESSION
     Dosage: 150 MG, DAILY
     Route: 048
     Dates: start: 20111122
  2. LOSARTAN [Concomitant]
     Indication: HYPERTENSION
     Dosage: ONE TABLET DAILY
     Dates: start: 20100101
  3. PRESSAT [Concomitant]
     Indication: HYPERTENSION
     Dosage: TWO TABLETS DAILY
     Dates: start: 20100101

REACTIONS (3)
  - MALAISE [None]
  - NASAL SEPTUM DISORDER [None]
  - EPISTAXIS [None]
